FAERS Safety Report 9521698 (Version 2)
Quarter: 2013Q3

REPORT INFORMATION
  Report Type: Report from Study
  Country: US (occurrence: US)
  Receive Date: 20130913
  Receipt Date: 20130913
  Transmission Date: 20140515
  Serious: Yes (Other)
  Sender: FDA-Public Use
  Company Number: PHEH2013US013781

PATIENT
  Age: 87 Year
  Sex: Male

DRUGS (10)
  1. GLEEVEC [Suspect]
     Indication: CHRONIC MYELOID LEUKAEMIA
     Dosage: 400 MG, DAILY
     Route: 048
     Dates: start: 20100518
  2. GLEEVEC [Suspect]
     Indication: CHRONIC MYELOID LEUKAEMIA
     Dosage: 400 MG, DAILY
     Route: 048
     Dates: start: 20100517
  3. ALLOPURINOL [Concomitant]
     Dosage: UNK UKN, UNK
  4. METOPROLOL [Concomitant]
     Dosage: UNK UKN, UNK
  5. LASIX [Concomitant]
     Dosage: UNK UKN, UNK
  6. ASPIRIN [Concomitant]
     Dosage: UNK UKN, UNK
  7. SEROQUEL [Concomitant]
     Dosage: UNK UKN, UNK
  8. ATACAND [Concomitant]
     Dosage: UNK UKN, UNK
  9. HYDROCHLOROTHIAZIDE [Concomitant]
     Dosage: UNK UKN, UNK
  10. AVAPRO [Concomitant]
     Dosage: UNK UKN, UNK

REACTIONS (4)
  - Dementia [Unknown]
  - Abnormal faeces [Unknown]
  - Diarrhoea [Unknown]
  - Local swelling [Unknown]
